FAERS Safety Report 13465763 (Version 1)
Quarter: 2017Q2

REPORT INFORMATION
  Report Type: Spontaneous
  Country: US (occurrence: US)
  Receive Date: 20170420
  Receipt Date: 20170420
  Transmission Date: 20170830
  Serious: No
  Sender: FDA-Public Use
  Company Number: None

PATIENT
  Age: 62 Year
  Sex: Male

DRUGS (2)
  1. FORTEO [Suspect]
     Active Substance: TERIPARATIDE
     Indication: TRAUMATIC FRACTURE
  2. FORTEO [Suspect]
     Active Substance: TERIPARATIDE
     Indication: OSTEOPOROSIS

REACTIONS (9)
  - Muscle spasms [None]
  - Headache [None]
  - Abdominal pain [None]
  - Dehydration [None]
  - Abdominal discomfort [None]
  - Hangover [None]
  - Dizziness [None]
  - Balance disorder [None]
  - Dry mouth [None]

NARRATIVE: CASE EVENT DATE: 20170413
